FAERS Safety Report 4847898-0 (Version None)
Quarter: 2005Q4

REPORT INFORMATION
  Report Type: 
  Country: None (occurrence: None)
  Receive Date: 20051206
  Receipt Date: 20051206
  Transmission Date: 20060501
  Serious: No
  Sender: FDA-Public Use
  Company Number: None

PATIENT
  Age: 66 Year
  Sex: Female
  Weight: 64 kg

DRUGS (11)
  1. SEROQUEL [Suspect]
     Dosage: 25 MG   ONCE DAILY  PO
     Route: 048
     Dates: start: 20050801, end: 20051109
  2. COREG [Concomitant]
  3. LIPITOR [Concomitant]
  4. DIGOXIN [Concomitant]
  5. AMIODARONE [Concomitant]
  6. COLACE [Concomitant]
  7. ARANESP [Concomitant]
  8. IMDUR [Concomitant]
  9. LACTULOSE [Concomitant]
  10. LASIX [Concomitant]
  11. COMBIVENT [Concomitant]

REACTIONS (2)
  - ELECTROCARDIOGRAM QT CORRECTED INTERVAL PROLONGED [None]
  - GASTROENTERITIS VIRAL [None]
